FAERS Safety Report 6947820-7 (Version None)
Quarter: 2010Q3

REPORT INFORMATION
  Report Type: 
  Country: None (occurrence: None)
  Receive Date: 20100828
  Receipt Date: 20091002
  Transmission Date: 20110219
  Serious: No
  Sender: FDA-Public Use
  Company Number: US-ABBOTT-09P-163-0601004-00

PATIENT
  Sex: Female
  Weight: 72.186 kg

DRUGS (13)
  1. NIASPAN [Suspect]
     Indication: BLOOD CHOLESTEROL INCREASED
     Route: 048
     Dates: start: 20090701
  2. FOSAMAX [Concomitant]
     Indication: OSTEOPOROSIS
  3. TOPROL-XL [Concomitant]
     Indication: HYPERTENSION
  4. NORVASC [Concomitant]
     Indication: HYPERTENSION
  5. FUROSEMIDE [Concomitant]
     Indication: FLUID RETENTION
     Route: 048
  6. ASPIRIN [Concomitant]
     Indication: CARDIOVASCULAR EVENT PROPHYLAXIS
     Route: 048
  7. MULTI-VITAMIN [Concomitant]
     Indication: MEDICAL DIET
     Route: 048
  8. VITAMIN E [Concomitant]
     Indication: MEDICAL DIET
     Route: 048
  9. LOVAZA [Concomitant]
     Indication: MEDICAL DIET
     Route: 048
  10. CALCIUM +D [Concomitant]
     Indication: MEDICAL DIET
     Route: 048
  11. FIBER LAXATIVE [Concomitant]
     Indication: IRRITABLE BOWEL SYNDROME
     Route: 048
  12. DIGESTIVE ADVANTAGE [Concomitant]
     Indication: IRRITABLE BOWEL SYNDROME
  13. TYLENOL (CAPLET) [Concomitant]
     Indication: PAIN

REACTIONS (2)
  - FEELING HOT [None]
  - FLUSHING [None]
